FAERS Safety Report 17284189 (Version 3)
Quarter: 2020Q1

REPORT INFORMATION
  Report Type: Spontaneous
  Country: JP (occurrence: JP)
  Receive Date: 20200117
  Receipt Date: 20200204
  Transmission Date: 20200409
  Serious: Yes (Hospitalization, Other)
  Sender: FDA-Public Use
  Company Number: JP-JNJFOC-20200120221

PATIENT
  Age: 85 Year
  Sex: Female
  Weight: 43 kg

DRUGS (10)
  1. SPIROPENT [Suspect]
     Active Substance: CLENBUTEROL HYDROCHLORIDE
     Indication: POLLAKIURIA
     Route: 048
     Dates: start: 20191018, end: 20191031
  2. REMINYL [Suspect]
     Active Substance: GALANTAMINE
     Route: 048
     Dates: start: 201806
  3. REMINYL [Suspect]
     Active Substance: GALANTAMINE
     Route: 048
     Dates: start: 201807
  4. REMINYL [Suspect]
     Active Substance: GALANTAMINE
     Route: 048
     Dates: start: 201808
  5. REMINYL [Suspect]
     Active Substance: GALANTAMINE
     Route: 048
     Dates: start: 201805
  6. REMINYL [Suspect]
     Active Substance: GALANTAMINE
     Route: 048
     Dates: start: 20191111, end: 20191208
  7. REMINYL [Suspect]
     Active Substance: GALANTAMINE
     Route: 048
     Dates: start: 201811, end: 20191031
  8. REMINYL [Suspect]
     Active Substance: GALANTAMINE
     Route: 048
     Dates: start: 20190930, end: 20191031
  9. REMINYL [Suspect]
     Active Substance: GALANTAMINE
     Route: 048
     Dates: start: 20191209
  10. REMINYL [Suspect]
     Active Substance: GALANTAMINE
     Indication: DEMENTIA ALZHEIMER^S TYPE
     Dosage: UNKNOWN
     Route: 048
     Dates: start: 2018, end: 20190929

REACTIONS (5)
  - Vomiting [Recovered/Resolved]
  - Seizure [Recovered/Resolved]
  - Wrong product administered [Unknown]
  - Toxicity to various agents [Recovered/Resolved]
  - Product dose omission [Unknown]

NARRATIVE: CASE EVENT DATE: 201910
